FAERS Safety Report 9741840 (Version 3)
Quarter: 2014Q2

REPORT INFORMATION
  Report Type: Report from Study
  Country: DE (occurrence: DE)
  Receive Date: 20131210
  Receipt Date: 20140411
  Transmission Date: 20141212
  Serious: Yes (Other)
  Sender: FDA-Public Use
  Company Number: PHHY2013DE143283

PATIENT
  Sex: Male

DRUGS (6)
  1. AMN107 [Suspect]
     Indication: CHRONIC MYELOID LEUKAEMIA
     Dosage: 600 MG, DAILY
     Route: 048
     Dates: start: 20130712
  2. RAMIPRIL [Concomitant]
     Indication: CARDIOMYOPATHY
     Dosage: 5 MG, DAILY
     Dates: start: 20090226
  3. METOPROLOL [Concomitant]
     Indication: CARDIOMYOPATHY
     Dosage: 95 MG, DAILY
     Dates: start: 20090226
  4. TORASEMID [Concomitant]
     Indication: CARDIOMYOPATHY
     Dates: start: 20090226
  5. SIMVASTATIN [Concomitant]
     Indication: HYPERLIPIDAEMIA
     Dosage: 40 MG, DAILY
     Dates: start: 20090226
  6. ALLOPURINOL [Concomitant]
     Indication: HYPERURICAEMIA
     Dosage: 300 MG, QD
     Dates: start: 20130627, end: 20130717

REACTIONS (3)
  - Bronchopneumonia [Recovered/Resolved]
  - C-reactive protein increased [Recovered/Resolved]
  - Pyrexia [Recovered/Resolved]
